FAERS Safety Report 8495513-X (Version None)
Quarter: 2012Q3

REPORT INFORMATION
  Report Type: 
  Country: None (occurrence: None)
  Receive Date: 20120709
  Receipt Date: 20120705
  Transmission Date: 20120928
  Serious: Yes (Other)
  Sender: FDA-Public Use
  Company Number: US-PFIZER INC-2012058817

PATIENT
  Sex: Male
  Weight: 83.9 kg

DRUGS (4)
  1. CHANTIX [Suspect]
     Indication: SMOKING CESSATION THERAPY
     Dosage: 0.5 MG, 1X/DAY
     Route: 048
     Dates: start: 20120225, end: 20120201
  2. CHANTIX [Suspect]
     Dosage: UNK
  3. CHANTIX [Suspect]
     Dosage: 0.5 MG, 2X/DAY
     Route: 048
     Dates: start: 20120201, end: 20120306
  4. CHANTIX [Suspect]
     Dosage: 0.5 MG, 1X/DAY
     Route: 048
     Dates: start: 20120225, end: 20120306

REACTIONS (6)
  - ABNORMAL DREAMS [None]
  - FEAR [None]
  - NIGHTMARE [None]
  - ANGER [None]
  - SOMNAMBULISM [None]
  - DYSURIA [None]
